FAERS Safety Report 4815646-6 (Version None)
Quarter: 2005Q4

REPORT INFORMATION
  Report Type: 
  Country: None (occurrence: None)
  Receive Date: 20051026
  Receipt Date: 20051018
  Transmission Date: 20060501
  Serious: Yes (Other)
  Sender: FDA-Public Use
  Company Number: 2005143644

PATIENT
  Age: 19 Year
  Sex: Female
  Weight: 50 kg

DRUGS (10)
  1. PHENYTOIN SODIUM [Suspect]
     Indication: CONVULSION
     Dosage: 300MG AM; 100MG NOON; 300MG PM
  2. CYCLOSPORINE [Suspect]
     Indication: IMMUNOSUPPRESSION
     Dosage: TITRATED
  3. TACROLIMUS (TACROLIMUS) [Suspect]
     Indication: IMMUNOSUPPRESSION
  4. SERTRALINE HCL [Concomitant]
  5. LISINOPRIL [Concomitant]
  6. MEGESTROL ACETATE [Concomitant]
  7. LANSOPRAZOLE [Concomitant]
  8. FOLATE (FOLIC ACID) [Concomitant]
  9. MULTIVITAMIN [Concomitant]
  10. CALCIUM ACETATE (CALCIUM ACETATE) [Concomitant]

REACTIONS (11)
  - BLOOD CREATININE INCREASED [None]
  - BLOOD PRESSURE INCREASED [None]
  - COMPLICATIONS OF TRANSPLANT SURGERY [None]
  - DRUG INTERACTION [None]
  - DRUG LEVEL FLUCTUATING [None]
  - DRUG RESISTANCE [None]
  - FUNGAEMIA [None]
  - KIDNEY TRANSPLANT REJECTION [None]
  - PNEUMONIA [None]
  - REFUSAL OF TREATMENT BY PATIENT [None]
  - RENAL TRANSPLANT [None]
